FAERS Safety Report 24325376 (Version 1)
Quarter: 2024Q3

REPORT INFORMATION
  Report Type: Spontaneous
  Country: US (occurrence: US)
  Receive Date: 20240916
  Receipt Date: 20240916
  Transmission Date: 20241016
  Serious: No
  Sender: KVK-TECH
  Company Number: US-KVK-TECH, INC-20240400034

PATIENT
  Age: 36 Year
  Sex: Female
  Weight: 53.515 kg

DRUGS (1)
  1. OXYCODONE HYDROCHLORIDE [Suspect]
     Active Substance: OXYCODONE HYDROCHLORIDE
     Indication: Pain
     Dosage: 5 MILLIGRAM, QID
     Route: 048
     Dates: start: 20240417

REACTIONS (4)
  - Hypersensitivity [Unknown]
  - Throat tightness [Unknown]
  - Urticaria [Unknown]
  - Pruritus [Not Recovered/Not Resolved]

NARRATIVE: CASE EVENT DATE: 20240417
